FAERS Safety Report 9032458 (Version 2)
Quarter: 2013Q2

REPORT INFORMATION
  Report Type: Report from Study
  Country: GB (occurrence: GB)
  Receive Date: 20130125
  Receipt Date: 20130524
  Transmission Date: 20140414
  Serious: Yes (Hospitalization)
  Sender: FDA-Public Use
  Company Number: GB-GLAXOSMITHKLINE-B0859859A

PATIENT
  Age: 83 Year
  Sex: Male
  Weight: 57 kg

DRUGS (2)
  1. PAZOPANIB [Suspect]
     Indication: BLADDER TRANSITIONAL CELL CARCINOMA
     Dosage: 400MG PER DAY
     Route: 048
     Dates: start: 20121110
  2. LANSOPRAZOLE [Concomitant]
     Indication: DYSPEPSIA
     Dosage: 15MG PER DAY
     Route: 048
     Dates: start: 200510

REACTIONS (2)
  - Urinary tract infection [Recovered/Resolved]
  - Bladder cancer [Recovered/Resolved]
